FAERS Safety Report 8144849-0 (Version None)
Quarter: 2012Q1

REPORT INFORMATION
  Report Type: 
  Country: None (occurrence: None)
  Receive Date: 20120217
  Receipt Date: 20120214
  Transmission Date: 20120608
  Serious: Yes (Hospitalization)
  Sender: FDA-Public Use
  Company Number: US-GLAXOSMITHKLINE-A0915702A

PATIENT
  Age: 67 Year
  Sex: Female

DRUGS (7)
  1. ZANAFLEX [Concomitant]
  2. METOPROLOL TARTRATE [Concomitant]
  3. PRILOSEC [Concomitant]
  4. SYNTHROID [Concomitant]
  5. ADVAIR DISKUS 100/50 [Concomitant]
  6. AVANDIA [Suspect]
     Indication: DIABETES MELLITUS
     Dosage: 4MG TWICE PER DAY
     Route: 048
     Dates: end: 20100701
  7. BEXTRA [Concomitant]

REACTIONS (13)
  - TRANSIENT ISCHAEMIC ATTACK [None]
  - HYPERLIPIDAEMIA [None]
  - CORONARY ARTERY DISEASE [None]
  - HYPERTENSION [None]
  - ARTERIOSCLEROSIS CORONARY ARTERY [None]
  - RENAL FAILURE CHRONIC [None]
  - FATIGUE [None]
  - CHRONIC OBSTRUCTIVE PULMONARY DISEASE [None]
  - CHEST PAIN [None]
  - DIASTOLIC DYSFUNCTION [None]
  - ASTHENIA [None]
  - PERIPHERAL VASCULAR DISORDER [None]
  - RENAL FAILURE [None]
